FAERS Safety Report 18920570 (Version 2)
Quarter: 2021Q2

REPORT INFORMATION
  Report Type: Spontaneous
  Country: FR (occurrence: FR)
  Receive Date: 20210222
  Receipt Date: 20210602
  Transmission Date: 20210717
  Serious: Yes (Hospitalization, Other)
  Sender: FDA-Public Use
  Company Number: FR-SA-2021SA055488

PATIENT
  Age: 80 Year
  Sex: Male
  Weight: 72 kg

DRUGS (12)
  1. DOLIPRANE [Concomitant]
     Active Substance: ACETAMINOPHEN
     Dosage: 500 MG, TID
     Route: 048
  2. MOVICOL [Concomitant]
     Active Substance: POLYETHYLENE GLYCOL 3350\POTASSIUM CHLORIDE\SODIUM BICARBONATE\SODIUM CHLORIDE
     Dosage: 1 IN THE MORNING AT 8:00 A.M., 1 AT NOON AT 12:00 P.M., 1 IN THE EVENING AT 6:00 P.M., EVERY DAY (S)
  3. CEREZYME [Suspect]
     Active Substance: IMIGLUCERASE
     Dosage: 10 DF, Q15D
     Dates: start: 20131213
  4. LASILIX FAIBLE [Concomitant]
     Active Substance: FUROSEMIDE
     Route: 048
  5. ACTONEL [Concomitant]
     Active Substance: RISEDRONATE SODIUM
  6. NEORECORMON [Concomitant]
     Active Substance: ERYTHROPOIETIN
     Route: 058
  7. NORSET [Concomitant]
     Active Substance: MIRTAZAPINE
  8. LINEZOLID. [Suspect]
     Active Substance: LINEZOLID
     Indication: DEVICE RELATED INFECTION
     Dosage: UNK
  9. SODIUM CHLORIDE. [Concomitant]
     Active Substance: SODIUM CHLORIDE
     Dosage: 0.9% RIGID BAG 250 ML
     Route: 048
  10. CALCIDOSE VITAMINE D [Concomitant]
     Active Substance: CALCIUM\CHOLECALCIFEROL
  11. SERESTA [Concomitant]
     Active Substance: OXAZEPAM
     Route: 048
  12. LAMALINE [ATROPA BELLADONNA EXTRACT;CAFFEINE;PAPAVER SOMNIFERUM TINCTU [Concomitant]
     Active Substance: ACETAMINOPHEN\BELLADONNA LEAF\CAFFEINE\OPIUM
     Dosage: 1 IN THE MORNING AT 8:00 A.M., 1 AT NOON AT 12:00 P.M., 1 IN THE EVENING AT 6:00 P.M., EVERY DAY (S)

REACTIONS (4)
  - Pancytopenia [Unknown]
  - Product administration error [Unknown]
  - Postoperative wound infection [Unknown]
  - Device related infection [Unknown]

NARRATIVE: CASE EVENT DATE: 2021
